FAERS Safety Report 7939286-5 (Version None)
Quarter: 2011Q4

REPORT INFORMATION
  Report Type: 
  Country: None (occurrence: None)
  Receive Date: 20111125
  Receipt Date: 20111115
  Transmission Date: 20120403
  Serious: Yes (Other)
  Sender: FDA-Public Use
  Company Number: US-AMGEN-USASP2011057654

PATIENT
  Age: 78 Year
  Sex: Male

DRUGS (3)
  1. PROCRIT [Suspect]
     Indication: NEPHROGENIC ANAEMIA
     Dosage: 20000 IU, QMO
     Route: 058
     Dates: start: 20100610
  2. PROCRIT [Suspect]
     Dosage: 20000 IU, Q2WK
     Route: 058
     Dates: start: 20100101, end: 20100415
  3. PROCRIT [Suspect]
     Dosage: 20000 IU, UNK
     Dates: start: 20110301

REACTIONS (4)
  - THERAPEUTIC RESPONSE DECREASED [None]
  - HAEMOGLOBIN DECREASED [None]
  - HYPERPARATHYROIDISM [None]
  - RETICULOCYTE COUNT DECREASED [None]
